FAERS Safety Report 9699014 (Version 1)
Quarter: 2013Q4

REPORT INFORMATION
  Report Type: Spontaneous
  Country: ES (occurrence: ES)
  Receive Date: 20131120
  Receipt Date: 20131120
  Transmission Date: 20140711
  Serious: Yes (Hospitalization)
  Sender: FDA-Public Use
  Company Number: ES-ELI_LILLY_AND_COMPANY-ES201311004119

PATIENT
  Age: 14 Year
  Sex: Female

DRUGS (6)
  1. HUMALOG LISPRO [Suspect]
     Indication: TYPE 1 DIABETES MELLITUS
     Dosage: UNK, OTHER
     Route: 065
  2. HUMALOG LISPRO [Suspect]
     Dosage: UNK UNK, EACH EVENING
     Route: 065
  3. HUMALOG 50% LISPRO, 50% NPL [Suspect]
     Indication: TYPE 1 DIABETES MELLITUS
     Dosage: UNK, OTHER
     Route: 065
  4. HUMALOG 50% LISPRO, 50% NPL [Suspect]
     Dosage: UNK, BID
     Route: 065
  5. HUMULIN REGULAR [Suspect]
     Indication: TYPE 1 DIABETES MELLITUS
     Dosage: UNK, UNKNOWN
     Route: 065
     Dates: end: 20131108
  6. LANTUS [Concomitant]
     Indication: TYPE 1 DIABETES MELLITUS
     Dosage: UNK, EACH EVENING
     Route: 065

REACTIONS (6)
  - Diabetes mellitus inadequate control [Unknown]
  - Ketonuria [Unknown]
  - Hyperglycaemia [Unknown]
  - Glycosylated haemoglobin increased [Unknown]
  - Diabetic nephropathy [Unknown]
  - Wrong technique in drug usage process [Recovered/Resolved]
